FAERS Safety Report 15487404 (Version 1)
Quarter: 2018Q4

REPORT INFORMATION
  Report Type: Spontaneous
  Country: DE (occurrence: DE)
  Receive Date: 20181011
  Receipt Date: 20181011
  Transmission Date: 20190205
  Serious: Yes (Hospitalization, Other)
  Sender: FDA-Public Use
  Company Number: DE-BAUSCH-BL-2018-027081

PATIENT
  Age: 86 Year
  Sex: Male
  Weight: 65 kg

DRUGS (9)
  1. ENALAPRIL [Suspect]
     Active Substance: ENALAPRIL
     Indication: PRODUCT USED FOR UNKNOWN INDICATION
     Dosage: 1/2-0-1/2; FROM 20.08.2008 REDUCED TO 2.5 MG / D
     Route: 065
     Dates: start: 200804, end: 2008
  2. ENALAPRIL [Suspect]
     Active Substance: ENALAPRIL
     Route: 065
     Dates: start: 20180820
  3. ASPIRIN. [Concomitant]
     Active Substance: ASPIRIN
     Indication: PRODUCT USED FOR UNKNOWN INDICATION
  4. BISOPROLOL [Suspect]
     Active Substance: BISOPROLOL
     Indication: PRODUCT USED FOR UNKNOWN INDICATION
     Dosage: AGAIN STARTED ON 20/AUG/2018
     Route: 065
  5. TAVANIC [Suspect]
     Active Substance: LEVOFLOXACIN
     Indication: PRODUCT USED FOR UNKNOWN INDICATION
     Route: 065
  6. AMLODIPINE [Suspect]
     Active Substance: AMLODIPINE BESYLATE
     Indication: PRODUCT USED FOR UNKNOWN INDICATION
     Route: 065
  7. XIPAMIDE [Suspect]
     Active Substance: XIPAMIDE
     Indication: PRODUCT USED FOR UNKNOWN INDICATION
     Route: 065
  8. CETIRIZINE [Concomitant]
     Active Substance: CETIRIZINE HYDROCHLORIDE
     Indication: PRODUCT USED FOR UNKNOWN INDICATION
  9. NOVALGIN (METAMIZOLE SODIUM) [Concomitant]
     Active Substance: METAMIZOLE SODIUM
     Indication: PRODUCT USED FOR UNKNOWN INDICATION
     Dosage: 90 GTT/D

REACTIONS (10)
  - Dehydration [Recovered/Resolved]
  - Bradyarrhythmia [Recovered/Resolved]
  - Hypotension [Recovered/Resolved]
  - Urinary tract infection [Recovered/Resolved]
  - Cardiac failure [Recovered/Resolved]
  - Renal function test abnormal [Recovered/Resolved]
  - Disturbance in attention [Recovered/Resolved]
  - Acute kidney injury [Recovered/Resolved]
  - Drug interaction [Recovered/Resolved]
  - Altered state of consciousness [Unknown]

NARRATIVE: CASE EVENT DATE: 20080721
